FAERS Safety Report 5679507-5 (Version None)
Quarter: 2008Q1

REPORT INFORMATION
  Report Type: 
  Country: None (occurrence: None)
  Receive Date: 20080325
  Receipt Date: 20080228
  Transmission Date: 20080703
  Serious: No
  Sender: FDA-Public Use
  Company Number: US-BOEHRINGER INGELHEIM GMBH, GERMANY-2008-BP-03077BP

PATIENT
  Age: 82 Year
  Sex: Male
  Weight: 86 kg

DRUGS (2)
  1. SPIRIVA [Suspect]
     Indication: CHRONIC OBSTRUCTIVE PULMONARY DISEASE
     Route: 055
     Dates: start: 20071201, end: 20080101
  2. ADVAIR DISKUS 100/50 [Concomitant]

REACTIONS (3)
  - DRY MOUTH [None]
  - PROSTATOMEGALY [None]
  - SALIVARY GLAND ENLARGEMENT [None]
